FAERS Safety Report 5102588-4 (Version None)
Quarter: 2006Q3

REPORT INFORMATION
  Report Type: 
  Country: None (occurrence: None)
  Receive Date: 20060907
  Receipt Date: 20060825
  Transmission Date: 20061208
  Serious: Yes (Congenital Anomaly, Other)
  Sender: FDA-Public Use
  Company Number: GXKR2006IT05286

PATIENT
  Sex: Female

DRUGS (2)
  1. THIAMAZOLE (NGX) (THIAMAZOLE) UNKNOWN [Suspect]
     Indication: BASEDOW'S DISEASE
     Dosage: TRANSPLACENTAL
     Route: 064
  2. PROPYLTHIOURACIL [Concomitant]

REACTIONS (9)
  - APLASIA CUTIS CONGENITA [None]
  - CHOANAL ATRESIA [None]
  - CONGENITAL DERMAL SINUS [None]
  - DRUG EXPOSURE DURING PREGNANCY [None]
  - EXOMPHALOS [None]
  - MULTIPLE CONGENITAL ABNORMALITIES [None]
  - PREMATURE BABY [None]
  - SKIN FISSURES [None]
  - UMBILICAL HERNIA [None]
